FAERS Safety Report 13337174 (Version 1)
Quarter: 2017Q1

REPORT INFORMATION
  Report Type: Spontaneous
  Country: US (occurrence: US)
  Receive Date: 20170314
  Receipt Date: 20170314
  Transmission Date: 20170428
  Serious: No
  Sender: FDA-Public Use
  Company Number: US-JAZZ-2017-US-001110

PATIENT
  Age: 13 Year
  Sex: Male

DRUGS (8)
  1. CLOZAPINE. [Suspect]
     Active Substance: CLOZAPINE
     Indication: AGGRESSION
  2. TOPIRAMATE. [Concomitant]
     Active Substance: TOPIRAMATE
     Indication: SEIZURE
  3. MELATONIN [Concomitant]
     Active Substance: MELATONIN
  4. CLOZAPINE. [Suspect]
     Active Substance: CLOZAPINE
     Indication: IRRITABILITY
     Dosage: 25-250 MG, QD (DOSE VARIANCE)
     Route: 048
  5. OXCARBAZEPINE. [Concomitant]
     Active Substance: OXCARBAZEPINE
     Indication: SEIZURE
  6. CLOZAPINE. [Suspect]
     Active Substance: CLOZAPINE
     Indication: DISABILITY
  7. TRAZODONE [Concomitant]
     Active Substance: TRAZODONE HYDROCHLORIDE
  8. ZOLPIDEM [Concomitant]
     Active Substance: ZOLPIDEM\ZOLPIDEM TARTRATE

REACTIONS (1)
  - Weight increased [Unknown]
